FAERS Safety Report 8839766 (Version 5)
Quarter: 2013Q1

REPORT INFORMATION
  Report Type: Report from Study
  Country: BE (occurrence: BE)
  Receive Date: 20121015
  Receipt Date: 20130328
  Transmission Date: 20140127
  Serious: Yes (Other)
  Sender: FDA-Public Use
  Company Number: BE-NOVOPROD-361579

PATIENT
  Age: 56 Year
  Sex: Female
  Weight: 88 kg

DRUGS (15)
  1. LIRAGLUTIDE FLEXPEN [Suspect]
     Indication: TYPE 2 DIABETES MELLITUS
     Dosage: 0.6 MG, UNK
     Route: 058
     Dates: start: 20110404
  2. LIRAGLUTIDE FLEXPEN [Suspect]
     Dosage: 1.2 MG, UNK
     Route: 058
     Dates: end: 20120520
  3. METFORMIN [Concomitant]
     Indication: TYPE 2 DIABETES MELLITUS
     Dosage: 2550 MG, QD
     Route: 048
     Dates: start: 20020724
  4. METFORMIN [Concomitant]
     Dosage: 1700 MG, QD
     Route: 048
  5. UNI DIAMICRON [Concomitant]
     Indication: TYPE 2 DIABETES MELLITUS
     Dosage: 60 MG, QD
     Route: 048
     Dates: start: 20071129
  6. UNI DIAMICRON [Concomitant]
     Dosage: 30 MG, QD
     Route: 048
  7. L-THYROXINE                        /00068001/ [Concomitant]
     Indication: THYROIDECTOMY
     Dosage: 175 UG, QD
     Route: 048
  8. LIPITOR [Concomitant]
     Indication: HYPERCHOLESTEROLAEMIA
     Dosage: 20 MG, QD
     Route: 048
     Dates: start: 20110404
  9. SEROXAT [Concomitant]
     Indication: DEPRESSION
     Dosage: 20 MG, QD
     Route: 048
     Dates: start: 201002
  10. WELLBUTRIN [Concomitant]
     Indication: DEPRESSION
     Dosage: 300 MG, QD
     Route: 048
     Dates: start: 20120707
  11. RIVOTRIL [Concomitant]
     Dosage: 2 MG, QD
     Route: 048
     Dates: start: 20080212
  12. LAMBIPOL [Concomitant]
     Indication: DEPRESSION
     Dosage: 200 MG, QD
     Route: 048
     Dates: start: 20111117
  13. DOCLORAZE [Concomitant]
     Indication: INSOMNIA
     Dosage: 2.50 MG, QD
     Route: 048
  14. CALCIUM CARBONATE [Concomitant]
     Dosage: 1 G, QD
     Route: 048
     Dates: start: 2008
  15. D-CURE [Concomitant]
     Indication: HYPOVITAMINOSIS
     Dosage: 1 DF, QD
     Route: 048

REACTIONS (3)
  - Weight decreased [Recovered/Resolved]
  - Dysphagia [Not Recovered/Not Resolved]
  - Abdominal pain [Recovered/Resolved]
